FAERS Safety Report 6065836-2 (Version None)
Quarter: 2009Q1

REPORT INFORMATION
  Report Type: 
  Country: None (occurrence: None)
  Receive Date: 20090205
  Receipt Date: 20090202
  Transmission Date: 20090719
  Serious: Yes (Death)
  Sender: FDA-Public Use
  Company Number: JP-JNJFOC-20090103865

PATIENT
  Sex: Male

DRUGS (9)
  1. DUROTEP [Suspect]
     Indication: HEPATIC NEOPLASM MALIGNANT
     Route: 062
  2. URSODESOXYCHOLIC ACID [Concomitant]
     Indication: HEPATIC FUNCTION ABNORMAL
     Route: 048
  3. CALCIUM L-ASPARTATE [Concomitant]
     Route: 048
  4. AZOSEMIDE [Concomitant]
     Route: 048
  5. SPIRONOLACTONE [Concomitant]
     Route: 048
  6. LACTOMIN [Concomitant]
     Route: 048
  7. VITAMEDIN [Concomitant]
     Route: 048
  8. SULBACTUM [Concomitant]
     Indication: PNEUMONIA
     Route: 041
  9. BIOFERMIN [Concomitant]
     Indication: DIARRHOEA
     Route: 048

REACTIONS (2)
  - ACUTE RESPIRATORY FAILURE [None]
  - PNEUMONIA ASPIRATION [None]
